FAERS Safety Report 6291213-5 (Version None)
Quarter: 2009Q3

REPORT INFORMATION
  Report Type: 
  Country: None (occurrence: None)
  Receive Date: 20090730
  Receipt Date: 20090722
  Transmission Date: 20100115
  Serious: Yes (Other)
  Sender: FDA-Public Use
  Company Number: PT-JNJFOC-20090608922

PATIENT
  Age: 25 Year
  Sex: Female

DRUGS (3)
  1. INFLIXIMAB [Suspect]
     Indication: CROHN'S DISEASE
     Dosage: STOPPED AFTER 2ND INFUSION
     Route: 042
  2. CORTISONE [Concomitant]
     Indication: PREMEDICATION
  3. ANTIHISTAMINE [Concomitant]
     Indication: PREMEDICATION

REACTIONS (6)
  - DYSPNOEA [None]
  - EYELID OEDEMA [None]
  - HYPERSENSITIVITY [None]
  - INFUSION RELATED REACTION [None]
  - STRIDOR [None]
  - TACHYCARDIA [None]
